FAERS Safety Report 5090406-2 (Version None)
Quarter: 2006Q3

REPORT INFORMATION
  Report Type: 
  Country: None (occurrence: None)
  Receive Date: 20060828
  Receipt Date: 20060823
  Transmission Date: 20061208
  Serious: Yes (Hospitalization, Other)
  Sender: FDA-Public Use
  Company Number: 2006UW16719

PATIENT
  Age: 23854 Day
  Sex: Male
  Weight: 54 kg

DRUGS (6)
  1. IRESSA [Suspect]
     Indication: TONGUE NEOPLASM MALIGNANT STAGE UNSPECIFIED
     Route: 048
     Dates: start: 20050411, end: 20050523
  2. IRESSA [Suspect]
     Dosage: MAINTENANCE DOSE
     Route: 048
     Dates: start: 20050524, end: 20060806
  3. PREDNISONE TAB [Concomitant]
     Indication: DYSPNOEA
     Route: 048
  4. LEXAPRO [Concomitant]
     Route: 048
  5. LEVOXYL [Concomitant]
     Indication: HYPOTHYROIDISM
     Route: 048
     Dates: start: 20060112
  6. PEPCID [Concomitant]
     Indication: GASTROOESOPHAGEAL REFLUX DISEASE
     Route: 048

REACTIONS (2)
  - ABSCESS BACTERIAL [None]
  - RASH ERYTHEMATOUS [None]
